FAERS Safety Report 7768820-3 (Version None)
Quarter: 2011Q3

REPORT INFORMATION
  Report Type: 
  Country: None (occurrence: None)
  Receive Date: 20110922
  Receipt Date: 20110913
  Transmission Date: 20111222
  Serious: Yes (Other)
  Sender: FDA-Public Use
  Company Number: CN-ASTRAZENECA-2011SE54694

PATIENT
  Sex: Female

DRUGS (5)
  1. MORPHINE [Suspect]
     Indication: POSTOPERATIVE ANALGESIA
     Dosage: 0.4MG OR 2MG
     Route: 065
  2. ROPIVACAINE HYDROCHLORIDE [Suspect]
     Indication: POSTOPERATIVE ANALGESIA
     Dosage: 178.8MG
     Route: 065
  3. BUPIVACAINE HCL [Suspect]
     Indication: POSTOPERATIVE ANALGESIA
     Dosage: 0.5% IN 1.3-1.7ML
     Route: 065
  4. SUFENTANIL CITRATE [Suspect]
     Indication: POSTOPERATIVE ANALGESIA
     Dosage: 0.1MG
     Route: 065
  5. DROPERIDOL [Suspect]
     Indication: POSTOPERATIVE ANALGESIA
     Dosage: 0.8MG OR 1MG
     Route: 065

REACTIONS (4)
  - NAUSEA [None]
  - RESPIRATORY DEPRESSION [None]
  - VOMITING [None]
  - PRURITUS [None]
